FAERS Safety Report 4295312-9 (Version None)
Quarter: 2004Q1

REPORT INFORMATION
  Report Type: 
  Country: None (occurrence: None)
  Receive Date: 20040216
  Receipt Date: 20030529
  Transmission Date: 20041129
  Serious: No
  Sender: FDA-Public Use
  Company Number: US-GLAXOSMITHKLINE-A0410570A

PATIENT
  Age: 17 Year
  Sex: Female

DRUGS (2)
  1. LAMICTAL [Suspect]
     Dosage: 25MG TWICE PER DAY
     Route: 048
  2. PAXIL CR [Concomitant]
     Dosage: 12.5MG PER DAY
     Route: 048

REACTIONS (3)
  - FOLLICULITIS [None]
  - RASH [None]
  - RASH PAPULAR [None]
